FAERS Safety Report 16249709 (Version 2)
Quarter: 2019Q2

REPORT INFORMATION
  Report Type: Spontaneous
  Country: JP (occurrence: JP)
  Receive Date: 20190429
  Receipt Date: 20190502
  Transmission Date: 20190711
  Serious: Yes (Death, Other)
  Sender: FDA-Public Use
  Company Number: JP-ROCHE-2307628

PATIENT
  Age: 7 Decade
  Sex: Female

DRUGS (2)
  1. CICLOSPORIN [Concomitant]
     Active Substance: CYCLOSPORINE
     Indication: STILL^S DISEASE
     Dosage: DOSAGE IS UNCERTAIN.
     Route: 048
  2. ACTEMRA [Suspect]
     Active Substance: TOCILIZUMAB
     Indication: STILL^S DISEASE
     Dosage: DOSAGE IS UNCERTAIN.
     Route: 058

REACTIONS (7)
  - Off label use [Unknown]
  - Intentional product use issue [Unknown]
  - Haemophagocytic lymphohistiocytosis [Unknown]
  - Fungal infection [Fatal]
  - Sepsis [Fatal]
  - Staphylococcal infection [Fatal]
  - Multiple organ dysfunction syndrome [Fatal]
